FAERS Safety Report 13045078 (Version 1)
Quarter: 2016Q4

REPORT INFORMATION
  Report Type: Spontaneous
  Country: CA (occurrence: CA)
  Receive Date: 20161220
  Receipt Date: 20161220
  Transmission Date: 20170207
  Serious: Yes (Hospitalization, Other)
  Sender: FDA-Public Use
  Company Number: CA-TEVA-721805ACC

PATIENT
  Age: 33 Month
  Sex: Female
  Weight: 15 kg

DRUGS (1)
  1. AMOXICILLIN. [Suspect]
     Active Substance: AMOXICILLIN
     Indication: OTITIS MEDIA
     Dosage: 1050 MILLIGRAM DAILY;
     Route: 048

REACTIONS (8)
  - Rash pruritic [Recovered/Resolved]
  - Weight bearing difficulty [Recovered/Resolved]
  - Skin discolouration [Recovered/Resolved]
  - Erythema [Recovered/Resolved]
  - Peripheral swelling [Recovered/Resolved]
  - Urticaria [Recovered/Resolved]
  - Condition aggravated [Recovered/Resolved]
  - Rash maculo-papular [Recovered/Resolved]
